FAERS Safety Report 25471756 (Version 1)
Quarter: 2025Q2

REPORT INFORMATION
  Report Type: Spontaneous
  Country: ES (occurrence: ES)
  Receive Date: 20250624
  Receipt Date: 20250624
  Transmission Date: 20250716
  Serious: Yes (Other)
  Sender: NOVO NORDISK
  Company Number: ES-NOVOPROD-1390289

PATIENT
  Age: 48 Year
  Sex: Female
  Weight: 82 kg

DRUGS (7)
  1. WEGOVY [Suspect]
     Active Substance: SEMAGLUTIDE
     Dates: start: 202501, end: 202502
  2. WEGOVY [Suspect]
     Active Substance: SEMAGLUTIDE
     Indication: Overweight
     Dates: start: 202410, end: 202411
  3. WEGOVY [Suspect]
     Active Substance: SEMAGLUTIDE
     Indication: Overweight
     Dates: start: 202412
  4. WEGOVY [Suspect]
     Active Substance: SEMAGLUTIDE
     Indication: Overweight
  5. WEGOVY [Suspect]
     Active Substance: SEMAGLUTIDE
     Indication: Overweight
     Dates: start: 20240602, end: 202407
  6. WEGOVY [Suspect]
     Active Substance: SEMAGLUTIDE
     Indication: Overweight
     Dates: start: 202408, end: 202409
  7. WEGOVY [Suspect]
     Active Substance: SEMAGLUTIDE
     Dates: start: 202503

REACTIONS (9)
  - Gastrointestinal inflammation [Unknown]
  - Crohn^s disease [Unknown]
  - Colitis ulcerative [Unknown]
  - Musculoskeletal stiffness [Recovered/Resolved]
  - Respiratory rate increased [Recovered/Resolved]
  - Anxiety [Recovered/Resolved]
  - Dizziness [Not Recovered/Not Resolved]
  - Inappropriate schedule of product administration [Recovered/Resolved]
  - Incorrect dose administered [Unknown]

NARRATIVE: CASE EVENT DATE: 20240602
